FAERS Safety Report 7904512-5 (Version None)
Quarter: 2011Q4

REPORT INFORMATION
  Report Type: 
  Country: None (occurrence: None)
  Receive Date: 20111109
  Receipt Date: 20111031
  Transmission Date: 20120403
  Serious: Yes (Hospitalization)
  Sender: FDA-Public Use
  Company Number: US-BAYER-2011-064569

PATIENT
  Age: 26 Year
  Sex: Female
  Weight: 56.689 kg

DRUGS (7)
  1. METRONIDAZOLE [Concomitant]
     Dosage: 500 MG, UNK
     Dates: start: 20090713
  2. RANITIDINE [Concomitant]
     Dosage: 150 MG, UNK
     Dates: start: 20090506
  3. DROSPIRENONE AND ETHINYL ESTRADIOL [Suspect]
     Indication: CONTRACEPTION
     Dosage: UNK
     Route: 048
     Dates: start: 20090201, end: 20090801
  4. DROSPIRENONE AND ETHINYL ESTRADIOL [Suspect]
     Indication: PREMENSTRUAL SYNDROME
     Dosage: UNK
     Route: 048
     Dates: start: 20090601, end: 20091001
  5. HYOSCYAMINE [Concomitant]
     Dosage: 0.375 MG, UNK
     Dates: start: 20090506
  6. CLARITHROMYCIN [Concomitant]
     Dosage: 500 MG, UNK
     Dates: start: 20090713
  7. NEXIUM [Concomitant]
     Dosage: 40 MG, UNK
     Dates: start: 20090713

REACTIONS (6)
  - EMOTIONAL DISTRESS [None]
  - INJURY [None]
  - CHOLECYSTITIS [None]
  - GALLBLADDER NON-FUNCTIONING [None]
  - PAIN [None]
  - ABDOMINAL PAIN UPPER [None]
